FAERS Safety Report 11386791 (Version 1)
Quarter: 2015Q3

REPORT INFORMATION
  Report Type: Spontaneous
  Country: US (occurrence: None)
  Receive Date: 20150814
  Receipt Date: 20150814
  Transmission Date: 20151125
  Serious: Yes (Hospitalization)
  Sender: FDA-Public Use
  Company Number: None

PATIENT
  Age: 82 Year
  Sex: Female
  Weight: 48.3 kg

DRUGS (12)
  1. PLAVIX [Suspect]
     Active Substance: CLOPIDOGREL BISULFATE
     Indication: CORONARY ARTERY DISEASE
     Dosage: CHRONIC
     Route: 048
  2. DEXILANT [Concomitant]
     Active Substance: DEXLANSOPRAZOLE
  3. ZETIA [Concomitant]
     Active Substance: EZETIMIBE
  4. NORVASC [Concomitant]
     Active Substance: AMLODIPINE BESYLATE
  5. ZOCOR [Concomitant]
     Active Substance: SIMVASTATIN
  6. APRESOLINE HYDROCHLORIDE [Concomitant]
     Active Substance: HYDRALAZINE HYDROCHLORIDE
  7. ECOTRIN [Suspect]
     Active Substance: ASPIRIN
     Indication: CORONARY ARTERY DISEASE
     Dosage: CHRONIC
     Route: 048
  8. IMDUR [Concomitant]
     Active Substance: ISOSORBIDE MONONITRATE
  9. NORCO [Concomitant]
     Active Substance: ACETAMINOPHEN\HYDROCODONE BITARTRATE
  10. COREG [Concomitant]
     Active Substance: CARVEDILOL
  11. FE [Concomitant]
     Active Substance: IRON
  12. LASIX [Concomitant]
     Active Substance: FUROSEMIDE

REACTIONS (3)
  - Dieulafoy^s vascular malformation [None]
  - Upper gastrointestinal haemorrhage [None]
  - Haemorrhagic anaemia [None]

NARRATIVE: CASE EVENT DATE: 20150202
